FAERS Safety Report 18793715 (Version 8)
Quarter: 2021Q2

REPORT INFORMATION
  Report Type: Spontaneous
  Country: US (occurrence: US)
  Receive Date: 20210127
  Receipt Date: 20210603
  Transmission Date: 20210717
  Serious: Yes (Other)
  Sender: FDA-Public Use
  Company Number: US-BAYER-2021-030853

PATIENT
  Age: 39 Year
  Sex: Male

DRUGS (13)
  1. KOGENATE FS [Suspect]
     Active Substance: ANTIHEMOPHILIC FACTOR, HUMAN RECOMBINANT
     Dosage: 2334 IU, TID, FOR THE EVENT ^RIGHT ELBOW BLEED^ TREATMENT
     Route: 042
     Dates: start: 20210405
  2. KOGENATE FS [Suspect]
     Active Substance: ANTIHEMOPHILIC FACTOR, HUMAN RECOMBINANT
     Dosage: 2334 IU, BID, FOR THE EVENT ACTIVE BLEED ON THE LEFT ANKLE AFTER INJURY TREATMENT
     Route: 042
     Dates: start: 20210510, end: 20210510
  3. KOGENATE FS [Suspect]
     Active Substance: ANTIHEMOPHILIC FACTOR, HUMAN RECOMBINANT
     Dosage: INFUSED 10 DOSES OF FACTOR TO TREAT THE SPONTANEOUS RIGHT ELBOW BLEED
  4. KOGENATE FS [Suspect]
     Active Substance: ANTIHEMOPHILIC FACTOR, HUMAN RECOMBINANT
     Dosage: 2343 IU, 6ID, TREATMENT FOR THE EVENT
     Route: 042
     Dates: start: 20210114, end: 20210116
  5. KOGENATE FS [Suspect]
     Active Substance: ANTIHEMOPHILIC FACTOR, HUMAN RECOMBINANT
     Dosage: 2334 IU, BID, FOR THE EVENT ACTIVE BLEED ON THE LEFT ANKLE AFTER INJURY TREATMENT
     Route: 042
     Dates: start: 20210509, end: 20210509
  6. KOGENATE FS [Suspect]
     Active Substance: ANTIHEMOPHILIC FACTOR, HUMAN RECOMBINANT
     Dosage: 4 DF; HAS INFUSED AN ADDITIONAL 4 DOSES SO FAR, FOR EVENT RIGHT ELBOW BLEED
     Route: 042
     Dates: start: 202104
  7. KOGENATE FS [Suspect]
     Active Substance: ANTIHEMOPHILIC FACTOR, HUMAN RECOMBINANT
     Dosage: 2334 IU, BID, FOR THE EVENT ACTIVE BLEED ON THE LEFT ANKLE AFTER INJURY TREATMENT
     Route: 042
     Dates: start: 20210508, end: 20210508
  8. KOGENATE FS [Suspect]
     Active Substance: ANTIHEMOPHILIC FACTOR, HUMAN RECOMBINANT
     Dosage: DOSING TWO TIMES A DAY TO TREAT THE EVENT OF BLEED IN MY LEFT ANKLE
     Dates: start: 202105
  9. KOGENATE FS [Suspect]
     Active Substance: ANTIHEMOPHILIC FACTOR, HUMAN RECOMBINANT
     Dosage: 2334 U
     Route: 042
  10. KOGENATE FS [Suspect]
     Active Substance: ANTIHEMOPHILIC FACTOR, HUMAN RECOMBINANT
     Dosage: UNK
  11. KOGENATE FS [Suspect]
     Active Substance: ANTIHEMOPHILIC FACTOR, HUMAN RECOMBINANT
     Dosage: 2234 IU, BID, FOR THE EVENT SPONTANEOUS LEFT ANKLE BLEED TREATMENT
     Route: 042
     Dates: start: 20210425
  12. KOGENATE FS [Suspect]
     Active Substance: ANTIHEMOPHILIC FACTOR, HUMAN RECOMBINANT
     Dosage: 2334 IU, BID, FOR THE EVENT ACTIVE BLEED ON THE LEFT ANKLE AFTER INJURY TREATMENT
     Route: 042
     Dates: start: 20210511, end: 20210511
  13. KOGENATE FS [Suspect]
     Active Substance: ANTIHEMOPHILIC FACTOR, HUMAN RECOMBINANT
     Dosage: 2334 IU, BID, TREATMENT FOR THE EVENT
     Route: 042
     Dates: start: 20210108, end: 20210108

REACTIONS (7)
  - Haemarthrosis [Recovered/Resolved]
  - Haemarthrosis [Recovered/Resolved]
  - Arthropathy [Unknown]
  - Haemarthrosis [Not Recovered/Not Resolved]
  - Haemarthrosis [Recovered/Resolved]
  - Haemarthrosis [Not Recovered/Not Resolved]
  - Haemarthrosis [Recovered/Resolved]

NARRATIVE: CASE EVENT DATE: 20210108
